FAERS Safety Report 16664166 (Version 3)
Quarter: 2019Q3

REPORT INFORMATION
  Report Type: Spontaneous
  Country: US (occurrence: US)
  Receive Date: 20190802
  Receipt Date: 20190917
  Transmission Date: 20191004
  Serious: No
  Sender: FDA-Public Use
  Company Number: US-PFIZER INC-2019326611

PATIENT
  Age: 78 Year
  Sex: Female
  Weight: 62.14 kg

DRUGS (4)
  1. FLECTOR [Suspect]
     Active Substance: DICLOFENAC EPOLAMINE
     Indication: PAIN IN EXTREMITY
  2. FLECTOR [Suspect]
     Active Substance: DICLOFENAC EPOLAMINE
     Indication: MUSCULOSKELETAL PAIN
     Dosage: UNK, AS NEEDED (2-3 STRIPS TO EACH ARM AS NEEDED FOR PAIN, AROUND HER SHOULDER JOINT)
     Route: 061
     Dates: start: 201803
  3. FLECTOR [Suspect]
     Active Substance: DICLOFENAC EPOLAMINE
     Indication: SPINAL DISORDER
     Dosage: UNK
     Route: 061
  4. FLECTOR [Suspect]
     Active Substance: DICLOFENAC EPOLAMINE
     Indication: ARTHRALGIA

REACTIONS (7)
  - Musculoskeletal pain [Unknown]
  - Product adhesion issue [Unknown]
  - Wrong technique in product usage process [Unknown]
  - Off label use [Unknown]
  - Product use in unapproved indication [Unknown]
  - Gait disturbance [Unknown]
  - Poor quality product administered [Unknown]
